FAERS Safety Report 7038094-X (Version None)
Quarter: 2010Q4

REPORT INFORMATION
  Report Type: 
  Country: None (occurrence: None)
  Receive Date: 20101011
  Receipt Date: 20100927
  Transmission Date: 20110411
  Serious: Yes (Other)
  Sender: FDA-Public Use
  Company Number: PHHY2010US51848

PATIENT
  Sex: Female
  Weight: 63.3 kg

DRUGS (63)
  1. RECLAST [Suspect]
     Indication: OSTEOPOROSIS
     Dosage: 5 MG/ 100 ML
     Route: 042
     Dates: start: 20100802
  2. ADVAIR DISKUS 100/50 [Concomitant]
     Dosage: 250-50 MCG/DOSE, INHALE 1 PUFF TWICE DAILY. RINSE MOUTH AFTER USE
  3. ALBUTEROL SULFATE [Concomitant]
     Dosage: INHALE 2 PUFFS FOUR TIMES DAILY AS DIRECTED
  4. ALPRAZOLAM [Concomitant]
     Dosage: 0.25 MG, TID,AS NEEDED
  5. AMOXICILLIN [Concomitant]
     Dosage: 500MG, BID
  6. ASPIRIN [Concomitant]
     Dosage: 81 MG, 1 CHEW QD
     Route: 048
  7. ATARAX [Concomitant]
     Dosage: 25 MG, 3 TIMES DAILY, AS NEEDED
  8. ATARAX [Concomitant]
     Dosage: 25 MG, 4 TIMES DAILY, AS NEEDED
  9. CHANTIX [Concomitant]
     Dosage: 1 MG, BID
  10. CHANTIX [Concomitant]
     Dosage: 0.5MGX11 AND1MGX42 TABLET
  11. CIPROFLOXACIN [Concomitant]
     Dosage: 500 MG, Q12H
  12. ALBOZ-2X [Concomitant]
  13. CYMBALTA [Concomitant]
     Dosage: 60 MG, BID
  14. DILAUDID [Concomitant]
     Dosage: 8 MG,EVERY 3 HOURS PRN
  15. DILAUDID [Concomitant]
     Dosage: 2 MG, 1 TABLET EVERY 4 HOURS AS NEEDED
  16. ERGOCALCIFEROL [Concomitant]
     Dosage: 50000UNITS TWICE A WEEK ON MON AND THURS
  17. ERGOCALCIFEROL [Concomitant]
     Dosage: 40000 UNITS, AS DIRECTED
  18. FENTANYL [Concomitant]
     Dosage: 75 MCG/HR, 1 PATCHEVERY 3 DAYS
  19. FENTANYL [Concomitant]
     Dosage: 100 MCG/HR, 1 PATCHEVERY 3 DAYS
  20. GABAPENTIN [Concomitant]
     Dosage: 300 MG, BID
  21. HYDROCORTISONE [Concomitant]
     Dosage: 10MG TAKE 3 TABLETS AS DIRECTED 2 TABLETS IN AM AND 1 TABLET IN PM
  22. LASIX [Concomitant]
     Dosage: 20 MG, QD
  23. LYRICA [Concomitant]
     Dosage: 150 MG, BID
  24. LYRICA [Concomitant]
     Dosage: 150 MG, 1 CAPSULE 4 TIMES DAILY
  25. LYRICA [Concomitant]
     Dosage: 75 MG, 2 CAPSULES 3 TIMES DAILY
  26. NORCO [Concomitant]
     Dosage: 325MG EVERY 4 TO 6 HOURS
  27. PHENERGAN [Concomitant]
     Dosage: 12.5 MG, QID
  28. POTASSIUM CHLORIDE [Concomitant]
     Dosage: 1 TABLEL TWICE DAILY
  29. PRENATAL FORMULA [Concomitant]
     Dosage: 1 TABLET DAILY
  30. SEROQUEL [Concomitant]
     Dosage: 200 MG,1 TABLET BEDTIME THEND/C IN 2 WEEKS
  31. SEROQUEL [Concomitant]
     Dosage: 200 MG,2 TABLET BEDTIME THEND/C IN 2 WEEKS
  32. SEROQUEL [Concomitant]
     Dosage: 100 MG, 1 TABLET 4 TIMES DAILY
  33. SEROQUEL [Concomitant]
     Dosage: 100 MG, 1 TABLET 3 TIMES DAILY
  34. SERTRALINE HYDROCHLORIDE [Concomitant]
     Dosage: 50 MG, QD
  35. SERTRALINE HYDROCHLORIDE [Concomitant]
     Dosage: 100 MG, 1 TABLET BID
  36. STOOL SOFTENER [Concomitant]
     Dosage: 100 MG, 2 CAPSULE DAILY PRN
  37. SYNTHROID [Concomitant]
     Dosage: 125 MCG, QD
  38. SYNTHROID [Concomitant]
     Dosage: 150 MCG, 1 TABLET DAILY
  39. TPN ELECTROLYTE FTV SOLN [Concomitant]
     Dosage: USE AS DIRECTED
  40. ZOFRAN [Concomitant]
     Dosage: 4 MG, 01 TABS PO BID PRN
  41. ACIDOPHILUS [Concomitant]
     Dosage: 1 CAPSULE 4 TIMES DAILY, 1 GRAM CAPSULES
  42. PECTIN [Concomitant]
     Dosage: 1 CAPSULE 4 TIMES DAILY
  43. OIL OF OREGANO [Concomitant]
  44. SOBRAX [Concomitant]
  45. MINERAL TAB [Concomitant]
     Dosage: 9 TABLETS DAILY
  46. CORTEF [Concomitant]
     Dosage: 5 MG, TAKE 6 TABLET 3 TIMES DAILY (20 MG IN AM AND 10 MG IN PM)
  47. DIPHENOXYLATE HCL AND ATROPINE SULFATE [Concomitant]
     Dosage: 2.5 - 0.025 MG, 1 CAPSULE 3 TIMES DAILY, PRN
  48. DURAGESIC-100 [Concomitant]
     Dosage: 100 MCG/HR PATCH, 1 PATCH EVERY 3 DAYS
  49. PRIMEROSE OIL [Concomitant]
     Dosage: AS DIRECTED
  50. FLAXSEED OIL [Concomitant]
     Dosage: 1 - 2 TABLE SPOON/ DAY
  51. FLOVENT [Concomitant]
     Dosage: 250 MCG/BLIST, 1 INHALATION TWICE A DAY
  52. FUROSEMIDE [Concomitant]
     Dosage: 20 MG, 2 TABLET EVERY 12 HRS
  53. HYDROXYZINE HYDROCHLORIDE [Concomitant]
     Dosage: 25 MG, 1 TABLET EVERY 6 HRS, PRN
  54. LEVAQUIN [Concomitant]
     Dosage: 750 MG, 1 TABLET DAILY FOR 14 DAYS
  55. LEVOTHYROXINE SODIUM [Concomitant]
     Dosage: 125 MCG, 1 TABLET DAILY, AS DIRECTED.
  56. LORAZEPAM [Concomitant]
     Dosage: 2 MG, 1 TABLET TWICE DAILY, AS NEEDED
  57. MELATONIN [Concomitant]
     Dosage: 1 MG, 2 CAPSULE BEDTIME, PRN
  58. MELATONIN [Concomitant]
     Dosage: 3 MG, 2 CAPSULE BEDTIME
  59. MILK THISTLE [Concomitant]
     Dosage: 3 CAPSULES DAILY
  60. MSM [Concomitant]
     Dosage: 4 - 6 TABLETS /DAY
  61. PREVACID [Concomitant]
     Dosage: 30 MG, PACK, 1 PACK TWICE DAILY
  62. TRAMADOL HYDROCHLORIDE [Concomitant]
     Dosage: 150 MG, 1 OR 2 TABLET, Q6 HR , PRN AS DIRECTED.
  63. ASCORBIC ACID [Concomitant]
     Dosage: 2 TABLET DAILY

REACTIONS (11)
  - ALANINE AMINOTRANSFERASE INCREASED [None]
  - ANALGESIC DRUG LEVEL INCREASED [None]
  - ASPARTATE AMINOTRANSFERASE INCREASED [None]
  - BLOOD ALKALINE PHOSPHATASE INCREASED [None]
  - BLOOD UREA INCREASED [None]
  - BLOOD UREA NITROGEN/CREATININE RATIO INCREASED [None]
  - DECREASED APPETITE [None]
  - FATIGUE [None]
  - HEPATIC ENZYME INCREASED [None]
  - MENTAL STATUS CHANGES [None]
  - PYREXIA [None]
